FAERS Safety Report 16461391 (Version 1)
Quarter: 2019Q2

REPORT INFORMATION
  Report Type: Spontaneous
  Country: GB (occurrence: GB)
  Receive Date: 20190620
  Receipt Date: 20190620
  Transmission Date: 20190711
  Serious: Yes (Other)
  Sender: FDA-Public Use
  Company Number: GB-NOVOPROD-667209

PATIENT
  Age: 48 Year
  Sex: Female
  Weight: 66 kg

DRUGS (1)
  1. NOVOFEM [Suspect]
     Active Substance: ESTRADIOL HEMIHYDRATE\NORETHINDRONE ACETATE
     Indication: MENOPAUSAL SYMPTOMS
     Dosage: 1 DF FOR 28 DAYS
     Route: 048
     Dates: start: 20181215, end: 20190323

REACTIONS (5)
  - Breast swelling [Recovered/Resolved]
  - Breast tenderness [Recovered/Resolved]
  - Lethargy [Recovered/Resolved]
  - Abnormal weight gain [Recovered/Resolved]
  - Abdominal distension [Recovered/Resolved]

NARRATIVE: CASE EVENT DATE: 20190120
